FAERS Safety Report 15255146 (Version 1)
Quarter: 2018Q3

REPORT INFORMATION
  Report Type: Spontaneous
  Country: US (occurrence: US)
  Receive Date: 20180717
  Receipt Date: 20180717
  Transmission Date: 20181010
  Serious: Yes (Death)
  Sender: FDA-Public Use
  Company Number: None

PATIENT
  Age: 11 Year
  Sex: Female
  Weight: 40 kg

DRUGS (6)
  1. PREDNISONE. [Suspect]
     Active Substance: PREDNISONE
     Dates: end: 20180620
  2. CYTARABINE. [Suspect]
     Active Substance: CYTARABINE
     Dates: end: 20180605
  3. ONCASPAR [Suspect]
     Active Substance: PEGASPARGASE
     Dates: end: 20180609
  4. METHOTREXATE. [Suspect]
     Active Substance: METHOTREXATE
     Dates: end: 20180613
  5. VINCRISTINE SULFATE. [Suspect]
     Active Substance: VINCRISTINE SULFATE
     Dates: end: 20180707
  6. DAUNORUBICIN [Suspect]
     Active Substance: DAUNORUBICIN
     Dates: end: 20180613

REACTIONS (13)
  - Meningitis [None]
  - Pyrexia [None]
  - Spinal column injury [None]
  - Unresponsive to stimuli [None]
  - Brain herniation [None]
  - Respiration abnormal [None]
  - Pancytopenia [None]
  - Bacillus test positive [None]
  - Brain injury [None]
  - Central nervous system lesion [None]
  - Abdominal pain [None]
  - Seizure [None]
  - Pupil fixed [None]

NARRATIVE: CASE EVENT DATE: 20180713
